FAERS Safety Report 4586129-6 (Version None)
Quarter: 2005Q1

REPORT INFORMATION
  Report Type: 
  Country: None (occurrence: None)
  Receive Date: 20050125
  Receipt Date: 20041027
  Transmission Date: 20050727
  Serious: No
  Sender: FDA-Public Use
  Company Number: USA041081384

PATIENT
  Age: 70 Year
  Sex: Female

DRUGS (4)
  1. FORTEO [Suspect]
     Indication: OSTEOPOROSIS
  2. EVISTA [Suspect]
  3. CALCIUM GLUCONATE [Concomitant]
  4. MIACALCIN (CALCITONIN) [Concomitant]

REACTIONS (4)
  - DRUG INEFFECTIVE [None]
  - INFUSION SITE BRUISING [None]
  - INJECTION SITE HAEMORRHAGE [None]
  - MUSCLE SPASMS [None]
